FAERS Safety Report 13024937 (Version 2)
Quarter: 2017Q1

REPORT INFORMATION
  Report Type: Spontaneous
  Country: US (occurrence: US)
  Receive Date: 20161213
  Receipt Date: 20170117
  Transmission Date: 20170428
  Serious: Yes (Hospitalization)
  Sender: FDA-Public Use
  Company Number: US-009507513-1612USA005975

PATIENT
  Age: 74 Year
  Sex: Male

DRUGS (9)
  1. ZOFENOPRIL CALCIUM [Concomitant]
     Active Substance: ZOFENOPRIL CALCIUM
     Dosage: UNK
     Dates: start: 2016
  2. METOPROLOL. [Concomitant]
     Active Substance: METOPROLOL
     Dosage: UNK
     Dates: start: 2016
  3. JANUVIA [Suspect]
     Active Substance: SITAGLIPTIN PHOSPHATE
     Indication: DIABETES MELLITUS
     Dosage: 50 MG, DAILY
     Route: 048
     Dates: start: 201512
  4. COZAAR [Concomitant]
     Active Substance: LOSARTAN POTASSIUM
     Dosage: UNK
     Route: 048
     Dates: start: 2016
  5. FUROSEMIDE. [Concomitant]
     Active Substance: FUROSEMIDE
     Dosage: UNK
     Route: 048
     Dates: start: 2016
  6. ONDANSETRON [Concomitant]
     Active Substance: ONDANSETRON
     Dosage: UNK
     Dates: start: 2016
  7. ASPIRIN. [Concomitant]
     Active Substance: ASPIRIN
     Dosage: UNK
     Route: 048
     Dates: start: 2016
  8. WARFARIN [Concomitant]
     Active Substance: WARFARIN
     Dosage: UNK
     Dates: start: 2016
  9. TRAMADOL HYDROCHLORIDE. [Concomitant]
     Active Substance: TRAMADOL HYDROCHLORIDE
     Dosage: UNK
     Dates: start: 2016

REACTIONS (8)
  - Balance disorder [Unknown]
  - Blood glucose increased [Unknown]
  - Adverse event [Unknown]
  - Clavicle fracture [Recovering/Resolving]
  - Fall [Unknown]
  - Headache [Not Recovered/Not Resolved]
  - Product use issue [Unknown]
  - Vascular injury [Unknown]

NARRATIVE: CASE EVENT DATE: 2016
